FAERS Safety Report 21574486 (Version 1)
Quarter: 2022Q4

REPORT INFORMATION
  Report Type: Spontaneous
  Country: US (occurrence: None)
  Receive Date: 20221108
  Receipt Date: 20221108
  Transmission Date: 20230113
  Serious: No
  Sender: FDA-Public Use
  Company Number: None

PATIENT
  Sex: Female

DRUGS (1)
  1. HUMIRA [Suspect]
     Active Substance: ADALIMUMAB
     Route: 058

REACTIONS (7)
  - Hypoaesthesia [None]
  - Paraesthesia [None]
  - Skin infection [None]
  - Injection site paraesthesia [None]
  - Injection site pain [None]
  - Psoriatic arthropathy [None]
  - COVID-19 [None]
